FAERS Safety Report 6289773-3 (Version None)
Quarter: 2009Q3

REPORT INFORMATION
  Report Type: 
  Country: None (occurrence: None)
  Receive Date: 20090730
  Receipt Date: 20080718
  Transmission Date: 20100115
  Serious: No
  Sender: FDA-Public Use
  Company Number: US-BRISTOL-MYERS SQUIBB COMPANY-14268106

PATIENT
  Age: 76 Year
  Sex: Female
  Weight: 89 kg

DRUGS (7)
  1. COUMADIN [Suspect]
     Indication: PULMONARY THROMBOSIS
     Dosage: CURRENT DOSE: 5MG X 4 DAYS AND 2.5MG X 3 DAYS INITIATED 3 WEEKS AGO
     Dates: start: 20080101
  2. CARDIZEM [Concomitant]
  3. JANUVIA [Concomitant]
  4. DIOVAN HCT [Concomitant]
  5. VYTORIN [Concomitant]
  6. TOPROL-XL [Concomitant]
  7. CLARINEX [Concomitant]

REACTIONS (2)
  - ARTHRALGIA [None]
  - MUSCULOSKELETAL PAIN [None]
